FAERS Safety Report 8495122-2 (Version None)
Quarter: 2012Q3

REPORT INFORMATION
  Report Type: 
  Country: None (occurrence: None)
  Receive Date: 20120702
  Receipt Date: 20120702
  Transmission Date: 20120928
  Serious: Yes (Hospitalization)
  Sender: FDA-Public Use
  Company Number: None

PATIENT
  Sex: Female
  Weight: 65 kg

DRUGS (6)
  1. OMEPRAZOLE [Concomitant]
  2. CISPLATIN [Suspect]
     Dosage: 66 MG
  3. CYCLEBENZAPRINE [Concomitant]
  4. COMPAZINE [Concomitant]
  5. LORTAB [Concomitant]
  6. POTASSIUM CHLORIDE [Concomitant]

REACTIONS (5)
  - PELVIC MASS [None]
  - HYDRONEPHROSIS [None]
  - URETERIC DILATATION [None]
  - RENAL FAILURE ACUTE [None]
  - POSTRENAL FAILURE [None]
